FAERS Safety Report 26160108 (Version 1)
Quarter: 2025Q4

REPORT INFORMATION
  Report Type: Spontaneous
  Country: GB (occurrence: GB)
  Receive Date: 20251216
  Receipt Date: 20251216
  Transmission Date: 20260118
  Serious: Yes (Death, Other)
  Sender: AUROBINDO
  Company Number: GB-MHRA-EMIS-852-6669d58a-03e7-42e8-83a3-2a9315f97e4d

PATIENT
  Age: 85 Year
  Sex: Female
  Weight: 68 kg

DRUGS (9)
  1. RIVAROXABAN [Suspect]
     Active Substance: RIVAROXABAN
     Indication: Atrial fibrillation
     Dosage: 1 DOSAGE FORM, ONCE A DAY
     Route: 065
     Dates: start: 20250512
  2. MORPHINE SULFATE [Concomitant]
     Active Substance: MORPHINE SULFATE
     Indication: Product used for unknown indication
     Dosage: 1 DOSAGE FORM, TWO TIMES A DAY  INCREASING UPTO 20MG TWICE A DAY
     Route: 065
     Dates: start: 20250403, end: 20250430
  3. ETORICOXIB [Concomitant]
     Active Substance: ETORICOXIB
     Indication: Product used for unknown indication
     Dosage: 1 DOSAGE FORM, ONCE A DAY  INCREASE TO MAX 3 DAILY IF REQUIRED FOR BACK PAIN.
     Route: 065
     Dates: start: 20250403
  4. OMEPRAZOLE [Concomitant]
     Active Substance: OMEPRAZOLE
     Indication: Product used for unknown indication
     Dosage: 1 DOSAGE FORM, ONCE A DAY WHILST TAKING ETRORICOXIB
     Route: 065
     Dates: start: 20250403
  5. MORPHINE [Concomitant]
     Active Substance: MORPHINE
     Indication: Product used for unknown indication
     Dosage: 300 MILLILITER (2.5 MLS TO 5 MLS 1-2 HOURLY IF REQUIRED FOR PAIN THAT BREAKS THROUGH THE SLOW RELEASE MORPHINE)
     Route: 065
     Dates: start: 20250403, end: 20250430
  6. GLYCERIN [Concomitant]
     Active Substance: GLYCERIN
     Indication: Product used for unknown indication
     Dosage: UNK (ONE OR TWO TO BE INSERTED INTO THE RECTUM DAILY WHEN REQUIRED)
     Route: 065
  7. Spikevax JN.1 COVID-19 mRNA Vaccine 0.1mg/ml dispersion for injection [Concomitant]
     Indication: Product used for unknown indication
     Dosage: 0.5 MILLILITER
     Dates: start: 20250402, end: 20250402
  8. COCODAMOL [Concomitant]
     Active Substance: ACETAMINOPHEN\CODEINE PHOSPHATE
     Indication: Pathological fracture
     Dosage: UNK (TAKE ONE OR TWO TABLETS EVERY 4 TO 6 HOURS WHEN REQUIRED. MAXIMUM 8 TABLETS PER DAY)
     Route: 065
  9. GABAPENTIN [Concomitant]
     Active Substance: GABAPENTIN
     Indication: Pathological fracture
     Dosage: TAKE ONE DAY 1, TAKE ONE TO BE TAKEN TWICE DAILY DAY 2, TAKE ONE TO BE TAKEN THREE TIMES DAILY DAY 3.
     Route: 065

REACTIONS (4)
  - Cerebral haemorrhage [Fatal]
  - Loss of consciousness [Not Recovered/Not Resolved]
  - Circulatory collapse [Not Recovered/Not Resolved]
  - Headache [Not Recovered/Not Resolved]

NARRATIVE: CASE EVENT DATE: 20250525
